FAERS Safety Report 21699698 (Version 1)
Quarter: 2022Q4

REPORT INFORMATION
  Report Type: Spontaneous
  Country: TR (occurrence: TR)
  Receive Date: 20221208
  Receipt Date: 20221208
  Transmission Date: 20230112
  Serious: Yes (Life-Threatening)
  Sender: FDA-Public Use
  Company Number: TR-002147023-NVSC2022TR284638

PATIENT
  Sex: Female

DRUGS (1)
  1. ILARIS [Suspect]
     Active Substance: CANAKINUMAB
     Indication: Familial amyloidosis
     Dosage: UNK, QMO
     Route: 065

REACTIONS (3)
  - Feeling abnormal [Unknown]
  - Product supply issue [Unknown]
  - Product use in unapproved indication [Unknown]
